FAERS Safety Report 7767159-X (Version None)
Quarter: 2011Q3

REPORT INFORMATION
  Report Type: 
  Country: None (occurrence: None)
  Receive Date: 20110922
  Receipt Date: 20110127
  Transmission Date: 20111222
  Serious: No
  Sender: FDA-Public Use
  Company Number: US-ASTRAZENECA-2011SE04749

PATIENT
  Age: 48 Year
  Sex: Female
  Weight: 113.4 kg

DRUGS (15)
  1. SINGULAIR [Concomitant]
  2. ABILIFY [Concomitant]
  3. SOL TAB [Concomitant]
  4. RESTORIL [Concomitant]
  5. RELASEN [Concomitant]
  6. XANAX [Concomitant]
  7. NORFLEX [Concomitant]
  8. SEROQUEL [Suspect]
     Indication: BIPOLAR DISORDER
     Route: 048
     Dates: start: 20080101
  9. PROZAC [Concomitant]
  10. PHENERGAN HCL [Concomitant]
  11. ACIPHEX [Concomitant]
  12. GABAPENTIN [Concomitant]
  13. ULTRAM [Concomitant]
  14. CARAFATE [Concomitant]
  15. LAMICTAL [Concomitant]

REACTIONS (2)
  - INSOMNIA [None]
  - DRUG DOSE OMISSION [None]
